FAERS Safety Report 24096677 (Version 1)
Quarter: 2024Q3

REPORT INFORMATION
  Report Type: Spontaneous
  Country: US (occurrence: None)
  Receive Date: 20240716
  Receipt Date: 20240716
  Transmission Date: 20241017
  Serious: Yes (Hospitalization)
  Sender: Public
  Company Number: None

PATIENT
  Age: 62 Year
  Sex: Female

DRUGS (5)
  1. CYCLOPHOSPHAMIDE [Suspect]
     Active Substance: CYCLOPHOSPHAMIDE
     Indication: Primary amyloidosis
     Dosage: 10 CAPSULES EVERY 7 DAYS BY  MOUTH?
     Route: 048
     Dates: start: 202406
  2. ORENCIA [Suspect]
     Active Substance: ABATACEPT
     Indication: Rheumatoid arthritis
  3. OMEPRAZOLE [Concomitant]
     Active Substance: OMEPRAZOLE
  4. ELIQUIS [Concomitant]
     Active Substance: APIXABAN
  5. MIDODRINE [Concomitant]
     Active Substance: MIDODRINE

REACTIONS (1)
  - Heart rate increased [None]

NARRATIVE: CASE EVENT DATE: 20240626
